FAERS Safety Report 10221163 (Version 1)
Quarter: 2014Q2

REPORT INFORMATION
  Report Type: Spontaneous
  Country: US (occurrence: US)
  Receive Date: 20140606
  Receipt Date: 20140606
  Transmission Date: 20141212
  Serious: No
  Sender: FDA-Public Use
  Company Number: US-GLAXOSMITHKLINE-A1061914A

PATIENT
  Age: 54 Year
  Sex: Female

DRUGS (13)
  1. BREO ELLIPTA [Suspect]
     Indication: RESPIRATORY TRACT CONGESTION
     Dosage: 1PUFF PER DAY
     Route: 055
     Dates: start: 20140218
  2. RANITIDINE [Concomitant]
  3. HCTZ [Concomitant]
  4. METFORMIN [Concomitant]
  5. QUINAPRIL [Concomitant]
  6. CYMBALTA [Concomitant]
  7. FLUTICASONE PROPIONATE [Concomitant]
  8. ATENOLOL [Concomitant]
  9. CHLORDIAZEPOXIDE + CLIDINIUM BROMIDE [Concomitant]
  10. VERAPAMIL ER [Concomitant]
  11. SIMVASTATIN [Concomitant]
  12. AVELOX [Concomitant]
     Indication: SINUSITIS
     Dates: end: 20140218
  13. SUDAFED [Concomitant]

REACTIONS (1)
  - Dysgeusia [Not Recovered/Not Resolved]
